FAERS Safety Report 6053936-2 (Version None)
Quarter: 2009Q1

REPORT INFORMATION
  Report Type: 
  Country: None (occurrence: None)
  Receive Date: 20090127
  Receipt Date: 20090120
  Transmission Date: 20090719
  Serious: Yes (Hospitalization)
  Sender: FDA-Public Use
  Company Number: FR-BAYER-200911631GPV

PATIENT
  Age: 65 Year
  Sex: Male

DRUGS (9)
  1. FLUDARABINE [Suspect]
     Indication: LYMPHOMA
     Dosage: TOTAL DAILY DOSE: 70 MG
     Route: 048
     Dates: start: 20080123
  2. FLUDARABINE [Suspect]
     Dosage: TOTAL DAILY DOSE: 70 MG
     Route: 048
     Dates: start: 20080220
  3. FLUDARABINE [Suspect]
     Dosage: TOTAL DAILY DOSE: 70 MG
     Route: 048
     Dates: start: 20080319
  4. FLUDARABINE [Suspect]
     Dosage: TOTAL DAILY DOSE: 70 MG
     Route: 048
     Dates: start: 20080619
  5. FLUDARABINE [Suspect]
     Dosage: TOTAL DAILY DOSE: 70 MG
     Route: 048
     Dates: start: 20080425
  6. FLUDARABINE [Suspect]
     Dosage: TOTAL DAILY DOSE: 70 MG
     Route: 048
     Dates: start: 20080522
  7. MABTHERA [Suspect]
     Indication: LYMPHOMA
     Route: 042
     Dates: start: 20080123, end: 20080319
  8. BACTRIM DS [Suspect]
     Route: 048
  9. ZELITREX [Suspect]
     Route: 048

REACTIONS (8)
  - ARTHRALGIA [None]
  - DRUG INTOLERANCE [None]
  - HYPERHIDROSIS [None]
  - HYPERTHERMIA [None]
  - HYPOAESTHESIA [None]
  - HYPOVOLAEMIC SHOCK [None]
  - PAIN [None]
  - PYREXIA [None]
